FAERS Safety Report 10257586 (Version 1)
Quarter: 2014Q2

REPORT INFORMATION
  Report Type: Spontaneous
  Country: IL (occurrence: None)
  Receive Date: 20140620
  Receipt Date: 20140620
  Transmission Date: 20141212
  Serious: Yes (Hospitalization)
  Sender: FDA-Public Use
  Company Number: IL-LHC-2014054

PATIENT
  Age: 11 Year
  Sex: Male

DRUGS (3)
  1. OXYGEN [Suspect]
     Indication: ANAESTHESIA
     Dosage: BAG-MASK ASSISTED VENTILATION
  2. MIDAZOLAM [Concomitant]
  3. PROPOFOL [Concomitant]

REACTIONS (4)
  - Abdominal distension [None]
  - Pneumoperitoneum [None]
  - Gastric perforation [None]
  - Wrong technique in drug usage process [None]
